FAERS Safety Report 8375783-9 (Version None)
Quarter: 2012Q2

REPORT INFORMATION
  Report Type: 
  Country: None (occurrence: None)
  Receive Date: 20120518
  Receipt Date: 20120518
  Transmission Date: 20120825
  Serious: Yes (Hospitalization)
  Sender: FDA-Public Use
  Company Number: None

PATIENT
  Age: 62 Year
  Sex: Male
  Weight: 96.8 kg

DRUGS (2)
  1. GLIPIZIDE [Suspect]
     Indication: DIABETES MELLITUS
     Dosage: 10 MG BID PO
     Route: 048
     Dates: start: 20031023, end: 20120508
  2. ACARBOSE [Suspect]
     Indication: DIABETES MELLITUS
     Dosage: 100 MG TID PO
     Route: 048
     Dates: start: 20110919, end: 20120508

REACTIONS (6)
  - SPEECH DISORDER [None]
  - ASTHENIA [None]
  - DIZZINESS [None]
  - INCORRECT DOSE ADMINISTERED [None]
  - DRUG DOSE OMISSION [None]
  - HYPOGLYCAEMIA [None]
